FAERS Safety Report 12707480 (Version 2)
Quarter: 2016Q3

REPORT INFORMATION
  Report Type: Report from Study
  Country: US (occurrence: US)
  Receive Date: 20160901
  Receipt Date: 20160913
  Transmission Date: 20161109
  Serious: Yes (Other)
  Sender: FDA-Public Use
  Company Number: US-GILEAD-2016-0231243

PATIENT
  Age: 42 Year
  Sex: Female

DRUGS (1)
  1. AMBRISENTAN [Suspect]
     Active Substance: AMBRISENTAN
     Indication: PRODUCT USED FOR UNKNOWN INDICATION
     Dosage: 5 MG, UNK
     Route: 065
     Dates: start: 20151102

REACTIONS (4)
  - Hydrosalpinx [Unknown]
  - Dysfunctional uterine bleeding [Unknown]
  - Urinary tract infection [Unknown]
  - Pregnancy [Unknown]

NARRATIVE: CASE EVENT DATE: 201608
